FAERS Safety Report 18646771 (Version 2)
Quarter: 2022Q4

REPORT INFORMATION
  Report Type: Report from Study
  Country: US (occurrence: US)
  Receive Date: 20201221
  Receipt Date: 20221230
  Transmission Date: 20230113
  Serious: No
  Sender: FDA-Public Use
  Company Number: US-ACORDA-ACO_167142_2020

PATIENT
  Sex: Male

DRUGS (5)
  1. INBRIJA [Suspect]
     Active Substance: LEVODOPA
     Indication: Parkinson^s disease
     Dosage: 2 CAPSULE, PRN (DO NOT EXCEED 5 DOSES IN 1 DAY, DO NOT SWALLOW CAPSULES)
     Dates: start: 202010
  2. INBRIJA [Suspect]
     Active Substance: LEVODOPA
     Indication: On and off phenomenon
     Dosage: 2 CAPSULE, PRN (DO NOT EXCEED 5 DOSES IN 1 DAY, DO NOT SWALLOW CAPSULES)
     Dates: start: 202010
  3. CARBIDOPA AND LEVODOPA [Concomitant]
     Active Substance: CARBIDOPA\LEVODOPA
     Indication: Product used for unknown indication
     Dosage: 25/100 MG; 1.5 PILLS AT 8 AM, 11 AM, 5 PM AND 8 PM; 1 PILL AT 2 PM
     Route: 065
  4. CARBIDOPA AND LEVODOPA [Concomitant]
     Active Substance: CARBIDOPA\LEVODOPA
     Dosage: ER 25/100 MG: 1 PILL AT 11 PM
     Route: 065
  5. ENTACAPONE [Concomitant]
     Active Substance: ENTACAPONE
     Indication: Product used for unknown indication
     Dosage: 1 DOSAGE FORM (1 PILL, 200 MG) 5 TIMES A DAY
     Route: 065

REACTIONS (5)
  - Intervertebral disc protrusion [Unknown]
  - Disease progression [Unknown]
  - Dystonia [Unknown]
  - Parkinson^s disease [Unknown]
  - Parkinson^s disease [Unknown]
